FAERS Safety Report 10930470 (Version 4)
Quarter: 2015Q2

REPORT INFORMATION
  Report Type: Report from Study
  Country: CA (occurrence: CA)
  Receive Date: 20150319
  Receipt Date: 20150609
  Transmission Date: 20150821
  Serious: Yes (Other)
  Sender: FDA-Public Use
  Company Number: CA-SA-2015SA032956

PATIENT
  Age: 30 Year
  Sex: Female

DRUGS (5)
  1. AUBAGIO [Suspect]
     Active Substance: TERIFLUNOMIDE
     Indication: RELAPSING-REMITTING MULTIPLE SCLEROSIS
     Route: 048
     Dates: start: 20140908
  2. NAPROXEN. [Concomitant]
     Active Substance: NAPROXEN
     Route: 048
  3. EFFEXOR [Concomitant]
     Active Substance: VENLAFAXINE HYDROCHLORIDE
     Route: 048
  4. VITAMIN D [Concomitant]
     Active Substance: CHOLECALCIFEROL
     Indication: MULTIPLE SCLEROSIS
     Route: 048
  5. CLONAZEPAM. [Concomitant]
     Active Substance: CLONAZEPAM
     Route: 048
     Dates: end: 20150215

REACTIONS (4)
  - Alanine aminotransferase increased [Recovered/Resolved]
  - Hepatic enzyme increased [Recovered/Resolved]
  - Rectal haemorrhage [Recovered/Resolved]
  - Aspartate aminotransferase increased [Recovered/Resolved]

NARRATIVE: CASE EVENT DATE: 201501
